FAERS Safety Report 9995028 (Version 1)
Quarter: 2014Q1

REPORT INFORMATION
  Report Type: Spontaneous
  Country: US (occurrence: None)
  Receive Date: 20140218
  Receipt Date: 20140218
  Transmission Date: 20141002
  Serious: Yes (Other)
  Sender: FDA-Public Use
  Company Number: 1000050735

PATIENT
  Sex: Female

DRUGS (1)
  1. VIIBRYD [Suspect]
     Dosage: 20MG (20MG, 1 IN 1 D) ORAL
     Route: 048

REACTIONS (2)
  - Dysarthria [None]
  - Hypoaesthesia [None]
